FAERS Safety Report 4289782-X (Version None)
Quarter: 2004Q1

REPORT INFORMATION
  Report Type: 
  Country: None (occurrence: None)
  Receive Date: 20040210
  Receipt Date: 20040114
  Transmission Date: 20041129
  Serious: Yes (Other)
  Sender: FDA-Public Use
  Company Number: IT-GLAXOSMITHKLINE-B0320541A

PATIENT
  Age: 11 Month
  Sex: Male

DRUGS (1)
  1. CLAVULIN [Suspect]
     Indication: OTITIS EXTERNA
     Dosage: 312.5MG PER DAY
     Route: 048
     Dates: start: 20031230, end: 20040105

REACTIONS (2)
  - ANGIONEUROTIC OEDEMA [None]
  - RASH ERYTHEMATOUS [None]
